FAERS Safety Report 7487400-0 (Version None)
Quarter: 2011Q2

REPORT INFORMATION
  Report Type: 
  Country: None (occurrence: None)
  Receive Date: 20110518
  Receipt Date: 20110504
  Transmission Date: 20111010
  Serious: Yes (Hospitalization)
  Sender: FDA-Public Use
  Company Number: US-ELI_LILLY_AND_COMPANY-US201007005371

PATIENT
  Sex: Male

DRUGS (9)
  1. ATROPINE [Concomitant]
     Indication: HIV INFECTION
  2. FORTEO [Suspect]
     Indication: OSTEOPOROSIS
     Dosage: 20 UG, DAILY (1/D)
     Route: 065
     Dates: start: 20100601
  3. CRESTOR [Concomitant]
     Indication: BLOOD CHOLESTEROL
  4. LEXAPRO [Concomitant]
  5. FORTEO [Suspect]
     Dosage: 20 UG, DAILY (1/D)
  6. XANAX [Concomitant]
     Indication: ANXIETY
  7. NORCO [Concomitant]
     Indication: ARTHRALGIA
  8. ABILIFY [Concomitant]
  9. FORTEO [Suspect]
     Dosage: 20 UG, QD

REACTIONS (9)
  - INTERVERTEBRAL DISC DISORDER [None]
  - HYPOAESTHESIA [None]
  - BACK PAIN [None]
  - ARTHRALGIA [None]
  - HYPOTENSION [None]
  - OSTEOARTHRITIS [None]
  - LOWER RESPIRATORY TRACT INFECTION [None]
  - INJECTION SITE PAIN [None]
  - VITAMIN D DECREASED [None]
